FAERS Safety Report 8606128-4 (Version None)
Quarter: 2012Q3

REPORT INFORMATION
  Report Type: 
  Country: None (occurrence: None)
  Receive Date: 20120820
  Receipt Date: 19951208
  Transmission Date: 20120928
  Serious: Yes (Other)
  Sender: FDA-Public Use
  Company Number: US-ROCHE-1101241

PATIENT
  Sex: Male

DRUGS (11)
  1. ATIVAN [Concomitant]
     Route: 042
  2. ACTIVASE [Suspect]
  3. NITROGLYCERIN [Concomitant]
     Dosage: THREE TABLETS GIVEN
     Route: 060
  4. NITROGLYCERIN [Concomitant]
     Route: 042
  5. NITROGLYCERIN [Concomitant]
     Dosage: INCREASED EVENTUALLY
  6. PEPCID [Concomitant]
     Route: 042
  7. HEPARIN [Concomitant]
     Dosage: 25 CC PER HOUR
  8. ACTIVASE [Suspect]
     Indication: ACUTE MYOCARDIAL INFARCTION
     Route: 040
  9. HEPARIN [Concomitant]
     Dosage: 5000 UNITS
     Route: 040
  10. MORPHINE [Concomitant]
  11. ASPIRIN [Concomitant]
     Route: 048

REACTIONS (5)
  - CHEST PAIN [None]
  - VENTRICULAR EXTRASYSTOLES [None]
  - COUGH [None]
  - VENTRICULAR TACHYCARDIA [None]
  - ABDOMINAL SYMPTOM [None]
